FAERS Safety Report 5028934-8 (Version None)
Quarter: 2006Q2

REPORT INFORMATION
  Report Type: 
  Country: None (occurrence: None)
  Receive Date: 20060503
  Receipt Date: 20060227
  Transmission Date: 20061013
  Serious: Yes (Hospitalization)
  Sender: FDA-Public Use
  Company Number: FACT0600130

PATIENT
  Age: 42 Year
  Sex: Female
  Weight: 59.4 kg

DRUGS (7)
  1. FACTIVE [Suspect]
     Indication: RESPIRATORY TRACT INFECTION BACTERIAL
     Dosage: 320 MG QD ORAL
     Route: 048
     Dates: start: 20060216, end: 20060222
  2. CORTICORSTEROIDS () [Suspect]
     Indication: BRONCHITIS
     Dates: start: 20060216
  3. FLONASE [Concomitant]
  4. ZYRTEC [Concomitant]
  5. MEDROL ACETATE [Concomitant]
  6. ADVAIR DISKUS 100/50 [Concomitant]
  7. SPIRIVA [Concomitant]

REACTIONS (2)
  - LEUKOCYTOSIS [None]
  - URTICARIA GENERALISED [None]
